FAERS Safety Report 17811544 (Version 1)
Quarter: 2020Q2

REPORT INFORMATION
  Report Type: Spontaneous
  Country: US (occurrence: US)
  Receive Date: 20200520
  Receipt Date: 20200520
  Transmission Date: 20200714
  Serious: Yes (Other)
  Sender: FDA-Public Use
  Company Number: None

PATIENT
  Age: 19 Year
  Sex: Male
  Weight: 87.54 kg

DRUGS (1)
  1. INDOMETHACIN. [Suspect]
     Active Substance: INDOMETHACIN
     Indication: GOUT
     Route: 048
     Dates: start: 20200520, end: 20200520

REACTIONS (1)
  - Urticaria [None]

NARRATIVE: CASE EVENT DATE: 20200520
